FAERS Safety Report 9814693 (Version 3)
Quarter: 2018Q1

REPORT INFORMATION
  Report Type: Spontaneous
  Country: US (occurrence: US)
  Receive Date: 20140113
  Receipt Date: 20180115
  Transmission Date: 20180509
  Serious: Yes (Hospitalization, Other)
  Sender: FDA-Public Use
  Company Number: US-SANOFI-AVENTIS-2012SA093888

PATIENT
  Age: 43 Year
  Sex: Female
  Weight: 82 kg

DRUGS (28)
  1. CARBOPLATIN. [Suspect]
     Active Substance: CARBOPLATIN
     Indication: BREAST CANCER
     Dosage: DOSE- 6 AUC
     Route: 042
     Dates: start: 20121115, end: 20121115
  2. PERTUZUMAB. [Suspect]
     Active Substance: PERTUZUMAB
     Indication: BREAST CANCER
     Route: 042
     Dates: start: 20121004, end: 20121004
  3. IMODIUM [Concomitant]
     Active Substance: LOPERAMIDE HYDROCHLORIDE
     Dosage: DAILY DOSE: 1-2 DF
     Route: 065
     Dates: start: 20121008
  4. EMLA [Concomitant]
     Active Substance: LIDOCAINE\PRILOCAINE
     Route: 065
  5. TAXOTERE [Suspect]
     Active Substance: DOCETAXEL
     Indication: BREAST CANCER
     Route: 042
     Dates: start: 20121004, end: 20121004
  6. DECADRON [Concomitant]
     Active Substance: DEXAMETHASONE
     Indication: PREMEDICATION
     Route: 065
     Dates: start: 20121003, end: 20130117
  7. VITAMIN B6 [Concomitant]
     Active Substance: PYRIDOXINE HYDROCHLORIDE
     Route: 065
     Dates: start: 20140718, end: 20140718
  8. TAXOTERE [Suspect]
     Active Substance: DOCETAXEL
     Indication: BREAST CANCER
     Route: 042
     Dates: start: 20121115, end: 20121115
  9. TRASTUZUMAB. [Suspect]
     Active Substance: TRASTUZUMAB
     Indication: BREAST CANCER
     Route: 042
     Dates: start: 20121004, end: 20121004
  10. TYLENOL [Concomitant]
     Active Substance: ACETAMINOPHEN
     Indication: PREMEDICATION
     Route: 065
     Dates: start: 20121004, end: 20140417
  11. AUGMENTIN [Concomitant]
     Active Substance: AMOXICILLIN\CLAVULANATE POTASSIUM
     Indication: BONE PAIN
     Route: 065
     Dates: start: 20121012, end: 20121024
  12. VICODIN [Concomitant]
     Active Substance: ACETAMINOPHEN\HYDROCODONE BITARTRATE
     Indication: BONE PAIN
     Route: 065
     Dates: start: 20121114
  13. CLARITIN [Concomitant]
     Active Substance: LORATADINE
     Indication: BONE PAIN
     Route: 065
     Dates: start: 20121012
  14. PERTUZUMAB. [Suspect]
     Active Substance: PERTUZUMAB
     Indication: BREAST CANCER
     Route: 042
     Dates: start: 20121115, end: 20121115
  15. FERROUS SULFATE. [Concomitant]
     Active Substance: FERROUS SULFATE
     Route: 065
     Dates: start: 20121004
  16. GLUTAMINE [Concomitant]
     Active Substance: GLUTAMINE
     Route: 065
     Dates: start: 20121004, end: 20130117
  17. VITAMIN D [Concomitant]
     Active Substance: CHOLECALCIFEROL
     Dosage: DOSE:50000 UNIT(S)
     Route: 065
     Dates: start: 20121003
  18. STOMATOLOGICALS, MOUTH PREPARATIONS [Concomitant]
     Dates: start: 20121007
  19. BENADRYL [Concomitant]
     Active Substance: DIPHENHYDRAMINE HYDROCHLORIDE
     Route: 065
     Dates: start: 20121004
  20. FLONASE [Concomitant]
     Active Substance: FLUTICASONE PROPIONATE
     Dosage: POST NASAL DRIP
     Route: 065
     Dates: start: 20121114
  21. TRASTUZUMAB. [Suspect]
     Active Substance: TRASTUZUMAB
     Indication: BREAST CANCER
     Route: 042
     Dates: start: 20121115, end: 20121115
  22. IBUPROFEN. [Concomitant]
     Active Substance: IBUPROFEN
     Indication: PAIN
     Dosage: DOSE: 400-800MG (2 IN 1 D)
     Route: 065
     Dates: start: 20120817
  23. FOLIC ACID. [Concomitant]
     Active Substance: FOLIC ACID
     Route: 065
     Dates: start: 20121121, end: 20140718
  24. CARBOPLATIN. [Suspect]
     Active Substance: CARBOPLATIN
     Indication: BREAST CANCER
     Dosage: DOSE- 6 AUC
     Route: 042
     Dates: start: 20121004, end: 20121004
  25. TRASTUZUMAB. [Suspect]
     Active Substance: TRASTUZUMAB
     Indication: BREAST CANCER
     Route: 042
     Dates: start: 20121025, end: 20121025
  26. COMPAZINE [Concomitant]
     Active Substance: PROCHLORPERAZINE MALEATE
     Route: 065
     Dates: start: 20121006
  27. NEXIUM /UNK/ [Concomitant]
     Route: 065
     Dates: start: 20121004, end: 20121205
  28. TORADOL [Concomitant]
     Active Substance: KETOROLAC TROMETHAMINE
     Indication: BONE PAIN
     Route: 065
     Dates: start: 20121116

REACTIONS (2)
  - Anaemia [Not Recovered/Not Resolved]
  - Dehydration [Recovered/Resolved]

NARRATIVE: CASE EVENT DATE: 20121119
